FAERS Safety Report 10236991 (Version 1)
Quarter: 2014Q2

REPORT INFORMATION
  Report Type: Spontaneous
  Country: US (occurrence: US)
  Receive Date: 20140613
  Receipt Date: 20140613
  Transmission Date: 20141212
  Serious: No
  Sender: FDA-Public Use
  Company Number: US-TEVA-486360USA

PATIENT
  Age: 57 Year
  Sex: Male
  Weight: 108.96 kg

DRUGS (3)
  1. AZILECT [Suspect]
     Indication: PARKINSON^S DISEASE
     Dates: start: 2011, end: 20140601
  2. DEPRESSION MEDICATIONS [Concomitant]
     Indication: DEPRESSION
  3. CARBIDOPA W/LEVODOPA [Concomitant]
     Indication: TREMOR

REACTIONS (4)
  - Dysphemia [Not Recovered/Not Resolved]
  - Poor quality sleep [Not Recovered/Not Resolved]
  - Insomnia [Not Recovered/Not Resolved]
  - Amnesia [Not Recovered/Not Resolved]
